FAERS Safety Report 24184530 (Version 1)
Quarter: 2024Q3

REPORT INFORMATION
  Report Type: Spontaneous
  Country: US (occurrence: US)
  Receive Date: 20240807
  Receipt Date: 20240807
  Transmission Date: 20241017
  Serious: Yes (Other)
  Sender: MERCK
  Company Number: US-009507513-2408USA000195

PATIENT
  Sex: Female

DRUGS (1)
  1. KEYTRUDA [Suspect]
     Active Substance: PEMBROLIZUMAB
     Dosage: ROUTE OF ADMINISTRATION: INFUSION

REACTIONS (3)
  - Neuropathy peripheral [Unknown]
  - Swelling [Unknown]
  - Depression [Unknown]
